FAERS Safety Report 7475125-7 (Version None)
Quarter: 2011Q2

REPORT INFORMATION
  Report Type: 
  Country: None (occurrence: None)
  Receive Date: 20110512
  Receipt Date: 20110506
  Transmission Date: 20111010
  Serious: Yes (Other)
  Sender: FDA-Public Use
  Company Number: US-SANOFI-AVENTIS-2011SA028337

PATIENT
  Age: 61 Year
  Sex: Female

DRUGS (1)
  1. ALLEGRA [Suspect]
     Route: 048
     Dates: start: 20110401

REACTIONS (1)
  - CATARACT [None]
